FAERS Safety Report 21855423 (Version 1)
Quarter: 2023Q1

REPORT INFORMATION
  Report Type: Spontaneous
  Country: GB (occurrence: GB)
  Receive Date: 20230112
  Receipt Date: 20230112
  Transmission Date: 20230418
  Serious: Yes (Life-Threatening, Other)
  Sender: FDA-Public Use
  Company Number: GB-AMNEAL PHARMACEUTICALS-2023-AMRX-00081

PATIENT
  Sex: Male

DRUGS (1)
  1. CIPROFLOXACIN [Suspect]
     Active Substance: CIPROFLOXACIN
     Indication: Gastrointestinal bacterial overgrowth
     Dosage: UNK
     Route: 065

REACTIONS (4)
  - Cardiac tamponade [Unknown]
  - Pericardial haemorrhage [Unknown]
  - Vitamin K deficiency [Unknown]
  - Condition aggravated [Unknown]
